FAERS Safety Report 12860530 (Version 1)
Quarter: 2016Q4

REPORT INFORMATION
  Report Type: Spontaneous
  Country: JP (occurrence: JP)
  Receive Date: 20161019
  Receipt Date: 20161019
  Transmission Date: 20170207
  Serious: Yes (Other)
  Sender: FDA-Public Use
  Company Number: JP-PFIZER INC-2016482432

PATIENT
  Age: 85 Year
  Sex: Male

DRUGS (1)
  1. ANAEMETRO 500MG [Suspect]
     Active Substance: METRONIDAZOLE
     Dosage: 1.5 G, DAILY
     Route: 041

REACTIONS (2)
  - Depressed level of consciousness [Unknown]
  - Loss of consciousness [Unknown]
